FAERS Safety Report 7319474-1 (Version None)
Quarter: 2011Q1

REPORT INFORMATION
  Report Type: 
  Country: None (occurrence: None)
  Receive Date: 20110228
  Receipt Date: 20100407
  Transmission Date: 20110831
  Serious: No
  Sender: FDA-Public Use
  Company Number: A0853938A

PATIENT
  Sex: Male

DRUGS (3)
  1. LAMOTRIGINE [Suspect]
     Route: 048
  2. TYLENOL [Concomitant]
  3. CYMBALTA [Concomitant]

REACTIONS (1)
  - DIZZINESS [None]
